FAERS Safety Report 8013647-0 (Version None)
Quarter: 2011Q4

REPORT INFORMATION
  Report Type: 
  Country: None (occurrence: None)
  Receive Date: 20111227
  Receipt Date: 20111227
  Transmission Date: 20120403
  Serious: No
  Sender: FDA-Public Use
  Company Number: None

PATIENT
  Sex: Male
  Weight: 120.2032 kg

DRUGS (1)
  1. NORCO [Suspect]
     Indication: PAIN
     Dosage: 1 TAB 6 HRS ORAL
     Route: 048
     Dates: start: 20110901, end: 20111101

REACTIONS (1)
  - HYPOAESTHESIA [None]
